FAERS Safety Report 6810720-7 (Version None)
Quarter: 2010Q2

REPORT INFORMATION
  Report Type: 
  Country: None (occurrence: None)
  Receive Date: 20100630
  Receipt Date: 20070524
  Transmission Date: 20101027
  Serious: No
  Sender: FDA-Public Use
  Company Number: US-PFIZER INC-2007043441

PATIENT
  Sex: Female
  Weight: 54.09 kg

DRUGS (2)
  1. ESTRING [Suspect]
     Indication: VULVOVAGINAL DRYNESS
     Dates: start: 20070521, end: 20070524
  2. VITAMINS [Concomitant]

REACTIONS (1)
  - GROIN PAIN [None]
